FAERS Safety Report 6579617-4 (Version None)
Quarter: 2010Q1

REPORT INFORMATION
  Report Type: 
  Country: None (occurrence: None)
  Receive Date: 20100209
  Receipt Date: 20100209
  Transmission Date: 20100710
  Serious: Yes (Other)
  Sender: FDA-Public Use
  Company Number: None

PATIENT
  Sex: Male
  Weight: 30.391 kg

DRUGS (1)
  1. PROPECIA [Suspect]
     Dosage: 1MG DAILY PO
     Route: 048
     Dates: start: 20051011, end: 20100201

REACTIONS (6)
  - ANGER [None]
  - DEPRESSION [None]
  - LIBIDO DECREASED [None]
  - MENTAL STATUS CHANGES [None]
  - MOOD SWINGS [None]
  - SLEEP DISORDER [None]
